FAERS Safety Report 20984233 (Version 1)
Quarter: 2022Q2

REPORT INFORMATION
  Report Type: Spontaneous
  Country: US (occurrence: None)
  Receive Date: 20220621
  Receipt Date: 20220621
  Transmission Date: 20220720
  Serious: No
  Sender: FDA-Public Use
  Company Number: US-ROCHE-3094016

PATIENT
  Age: 71 Year
  Sex: Female

DRUGS (3)
  1. TECENTRIQ [Suspect]
     Active Substance: ATEZOLIZUMAB
     Indication: Non-small cell lung cancer
     Route: 041
     Dates: start: 20210908
  2. ETOPOSIDE [Concomitant]
     Active Substance: ETOPOSIDE
     Indication: Non-small cell lung cancer
     Route: 065
     Dates: start: 20210908, end: 20211201
  3. CARBOPLATIN [Concomitant]
     Active Substance: CARBOPLATIN
     Indication: Non-small cell lung cancer
     Route: 065
     Dates: start: 20210908, end: 20211201

REACTIONS (8)
  - Lip erythema [Recovered/Resolved with Sequelae]
  - Oral discomfort [Recovered/Resolved with Sequelae]
  - Cheilitis [Recovered/Resolved with Sequelae]
  - Taste disorder [Not Recovered/Not Resolved]
  - Salivary hypersecretion [Not Recovered/Not Resolved]
  - Hypersensitivity [Not Recovered/Not Resolved]
  - Cough [Not Recovered/Not Resolved]
  - Rhinorrhoea [Not Recovered/Not Resolved]

NARRATIVE: CASE EVENT DATE: 20220301
